FAERS Safety Report 16056323 (Version 1)
Quarter: 2019Q1

REPORT INFORMATION
  Report Type: Spontaneous
  Country: US (occurrence: US)
  Receive Date: 20190311
  Receipt Date: 20190311
  Transmission Date: 20190418
  Serious: Yes (Other)
  Sender: FDA-Public Use
  Company Number: US-BAYER-2019-048514

PATIENT
  Age: 63 Year
  Sex: Male

DRUGS (4)
  1. CLOPIDOGREL [Interacting]
     Active Substance: CLOPIDOGREL BISULFATE
     Indication: ANTIPLATELET THERAPY
     Dosage: 75 MG, QD
  2. CLOPIDOGREL [Interacting]
     Active Substance: CLOPIDOGREL BISULFATE
     Indication: PERCUTANEOUS CORONARY INTERVENTION
  3. ACETYLSALICYLIC ACID (CARDIO) [Suspect]
     Active Substance: ASPIRIN
     Indication: ANTIPLATELET THERAPY
     Dosage: 81 MG, QD
  4. ACETYLSALICYLIC ACID (CARDIO) [Interacting]
     Active Substance: ASPIRIN
     Indication: PERCUTANEOUS CORONARY INTERVENTION

REACTIONS (3)
  - Product administration error [None]
  - Haemarthrosis [Not Recovered/Not Resolved]
  - Labelled drug-drug interaction medication error [None]
